FAERS Safety Report 8478804-8 (Version None)
Quarter: 2012Q2

REPORT INFORMATION
  Report Type: 
  Country: None (occurrence: None)
  Receive Date: 20120402
  Receipt Date: 20111013
  Transmission Date: 20120825
  Serious: Yes (Hospitalization, Disabling, Other)
  Sender: FDA-Public Use
  Company Number: 289283USA

PATIENT
  Age: 58 Year
  Sex: Female

DRUGS (3)
  1. ALENDRONATE SODIUM [Suspect]
     Indication: OSTEOPENIA
     Dates: start: 20080301
  2. ALENDRONATE SODIUM [Suspect]
     Indication: OSTEOPENIA
     Dates: start: 20050201
  3. RISEDRONATE SODIUM [Suspect]
     Indication: OSTEOPENIA

REACTIONS (8)
  - PAIN [None]
  - LOW TURNOVER OSTEOPATHY [None]
  - FEMUR FRACTURE [None]
  - LIMB IMMOBILISATION [None]
  - ACTIVITIES OF DAILY LIVING IMPAIRED [None]
  - STRESS FRACTURE [None]
  - GAIT DISTURBANCE [None]
  - SCAR [None]
